FAERS Safety Report 5878166-6 (Version None)
Quarter: 2008Q3

REPORT INFORMATION
  Report Type: 
  Country: None (occurrence: None)
  Receive Date: 20080911
  Receipt Date: 20080902
  Transmission Date: 20090109
  Serious: Yes (Hospitalization)
  Sender: FDA-Public Use
  Company Number: CH-ABBOTT-08P-151-0471567-00

PATIENT
  Sex: Female

DRUGS (6)
  1. HUMIRA [Suspect]
     Indication: CROHN'S DISEASE
     Dosage: SINGLE DOSE
     Route: 058
     Dates: start: 20080805, end: 20080805
  2. HUMIRA [Suspect]
     Indication: COLITIS ULCERATIVE
  3. STEROIDS [Suspect]
     Indication: CROHN'S DISEASE
     Dosage: STARTED BEGINNING OF AUG 2008
     Route: 042
     Dates: start: 20080801, end: 20080801
  4. STEROIDS [Suspect]
     Indication: COLITIS ULCERATIVE
  5. AZATHIOPRINE [Concomitant]
     Indication: CROHN'S DISEASE
     Route: 048
     Dates: start: 20070501, end: 20080816
  6. PREDNISONE TAB [Concomitant]
     Indication: CROHN'S DISEASE
     Route: 048
     Dates: start: 20051001, end: 20080826

REACTIONS (5)
  - CARDIOMYOPATHY [None]
  - DEPRESSED LEVEL OF CONSCIOUSNESS [None]
  - DISORIENTATION [None]
  - RENAL FAILURE ACUTE [None]
  - RESPIRATORY FAILURE [None]
